FAERS Safety Report 4590404-9 (Version None)
Quarter: 2005Q1

REPORT INFORMATION
  Report Type: 
  Country: None (occurrence: None)
  Receive Date: 20050224
  Receipt Date: 20050214
  Transmission Date: 20050727
  Serious: Yes (Death, Hospitalization)
  Sender: FDA-Public Use
  Company Number: JP-JNJFOC-20041206672

PATIENT
  Age: 76 Year
  Sex: Male

DRUGS (9)
  1. RISPERDAL [Suspect]
     Route: 049
  2. AMANTADINE HCL [Suspect]
     Indication: DRUG USE FOR UNKNOWN INDICATION
     Route: 065
  3. ENALAPRIL MALEATE [Suspect]
     Indication: DRUG USE FOR UNKNOWN INDICATION
     Route: 065
  4. FAMOTIDINE [Concomitant]
     Route: 065
  5. TEPRENONE [Concomitant]
     Route: 065
  6. CARBOCISTEINE [Concomitant]
     Route: 065
  7. CAMOSTAT MESILATE [Concomitant]
     Route: 065
  8. TULOBUTEROL [Concomitant]
     Route: 065
  9. CLOSTRIDIUM BUTYRICUM [Concomitant]

REACTIONS (6)
  - BODY TEMPERATURE DECREASED [None]
  - BRADYCARDIA [None]
  - HYPOTENSION [None]
  - LIVER FUNCTION TEST ABNORMAL [None]
  - PNEUMONIA ASPIRATION [None]
  - RESPIRATORY FAILURE [None]
